FAERS Safety Report 4641642-8 (Version None)
Quarter: 2005Q2

REPORT INFORMATION
  Report Type: 
  Country: None (occurrence: None)
  Receive Date: 20050420
  Receipt Date: 20050404
  Transmission Date: 20051028
  Serious: Yes (Other)
  Sender: FDA-Public Use
  Company Number: B0377390A

PATIENT
  Sex: Male

DRUGS (2)
  1. VINORELBINE TARTRATE [Suspect]
     Indication: PROSTATE CANCER
     Dosage: 30 MG/M2 CYCLIC INTRAVENOUS
     Route: 042
  2. PREDNISONE [Suspect]
     Indication: PROSTATE CANCER
     Dosage: ORAL
     Route: 048

REACTIONS (1)
  - DIABETES MELLITUS [None]
